FAERS Safety Report 11078331 (Version 3)
Quarter: 2015Q3

REPORT INFORMATION
  Report Type: Spontaneous
  Country: NL (occurrence: NL)
  Receive Date: 20150430
  Receipt Date: 20150910
  Transmission Date: 20151125
  Serious: Yes (Death, Hospitalization, Other)
  Sender: FDA-Public Use
  Company Number: NL-ASTRAZENECA-2014SE59604

PATIENT
  Age: 27136 Day
  Sex: Male

DRUGS (1)
  1. ZOLADEX [Suspect]
     Active Substance: GOSERELIN ACETATE
     Indication: PROSTATE CANCER
     Route: 058
     Dates: start: 20130903

REACTIONS (8)
  - Death [Fatal]
  - Malignant neoplasm progression [Unknown]
  - Delirium [Unknown]
  - Cystitis [Unknown]
  - Feeling cold [Unknown]
  - Dementia Alzheimer^s type [Unknown]
  - Hot flush [Unknown]
  - Confusional state [Unknown]

NARRATIVE: CASE EVENT DATE: 20150831
